FAERS Safety Report 7175712-X (Version None)
Quarter: 2010Q4

REPORT INFORMATION
  Report Type: 
  Country: None (occurrence: None)
  Receive Date: 20101220
  Receipt Date: 20100329
  Transmission Date: 20110411
  Serious: No
  Sender: FDA-Public Use
  Company Number: US-AMGEN-TCS397984

PATIENT

DRUGS (5)
  1. ENBREL [Suspect]
     Indication: PSORIASIS
     Dosage: 50 MG, 2 TIMES/WK
     Route: 058
     Dates: start: 20030430
  2. METHOTREXATE [Concomitant]
  3. ALENDRONATE SODIUM [Concomitant]
  4. ALPRAZOLAM [Concomitant]
  5. ESTRADIOL [Concomitant]

REACTIONS (4)
  - ASPIRATION BONE MARROW [None]
  - PLATELET COUNT INCREASED [None]
  - PROCEDURAL PAIN [None]
  - WHITE BLOOD CELL COUNT ABNORMAL [None]
